FAERS Safety Report 24152481 (Version 1)
Quarter: 2024Q3

REPORT INFORMATION
  Report Type: Spontaneous
  Country: CA (occurrence: CA)
  Receive Date: 20240730
  Receipt Date: 20240730
  Transmission Date: 20241016
  Serious: Yes (Other)
  Sender: CELLTRION
  Company Number: CA-CELLTRION INC.-2022CA022654

PATIENT

DRUGS (1)
  1. TRUXIMA [Suspect]
     Active Substance: RITUXIMAB-ABBS
     Indication: Rheumatoid arthritis
     Dosage: 1000 MG, DAY 1 AND 15
     Route: 042
     Dates: start: 20230404

REACTIONS (8)
  - Loss of personal independence in daily activities [Unknown]
  - Physical disability [Unknown]
  - Swelling face [Not Recovered/Not Resolved]
  - Subcutaneous abscess [Unknown]
  - Tooth infection [Not Recovered/Not Resolved]
  - Malaise [Not Recovered/Not Resolved]
  - Intentional dose omission [Unknown]
  - Product prescribing issue [Unknown]
